FAERS Safety Report 6507621-0 (Version None)
Quarter: 2009Q4

REPORT INFORMATION
  Report Type: 
  Country: None (occurrence: None)
  Receive Date: 20091221
  Receipt Date: 20090921
  Transmission Date: 20100525
  Serious: No
  Sender: FDA-Public Use
  Company Number: US-BRISTOL-MYERS SQUIBB COMPANY-14739833

PATIENT
  Sex: Female

DRUGS (7)
  1. PRAVACHOL [Suspect]
  2. LISINOPRIL [Suspect]
  3. PLAVIX [Suspect]
  4. ZOLOFT [Suspect]
  5. ALBUTEROL [Suspect]
     Dosage: NEBULIZER
  6. GLYBURIDE [Suspect]
  7. JANUVIA [Suspect]

REACTIONS (5)
  - ABDOMINAL PAIN UPPER [None]
  - FATIGUE [None]
  - INCREASED APPETITE [None]
  - SLEEP DISORDER [None]
  - VOMITING [None]
